FAERS Safety Report 15506811 (Version 2)
Quarter: 2018Q4

REPORT INFORMATION
  Report Type: Spontaneous
  Country: DE (occurrence: DE)
  Receive Date: 20181016
  Receipt Date: 20181101
  Transmission Date: 20190205
  Serious: Yes (Other)
  Sender: FDA-Public Use
  Company Number: DE-PROVELL PHARMACEUTICALS-2056111

PATIENT
  Age: 37 Year
  Sex: Male
  Weight: 108 kg

DRUGS (5)
  1. VALSARTAN/AMLODIPINO(DIOVAN AMLO) [Suspect]
     Active Substance: AMLODIPINE\VALSARTAN
  2. METFORMIN [Suspect]
     Active Substance: METFORMIN HYDROCHLORIDE
  3. GLICLAZIDE [Suspect]
     Active Substance: GLICLAZIDE
  4. EUTHYROX [Suspect]
     Active Substance: LEVOTHYROXINE SODIUM
     Indication: PRODUCT USED FOR UNKNOWN INDICATION
  5. NEBIVOLOL. [Suspect]
     Active Substance: NEBIVOLOL

REACTIONS (15)
  - Oedema peripheral [Unknown]
  - Glycosuria [Unknown]
  - Hypertension [Recovering/Resolving]
  - Kidney fibrosis [Unknown]
  - Renal impairment [Not Recovered/Not Resolved]
  - Oedema [Recovering/Resolving]
  - Intercapillary glomerulosclerosis [Unknown]
  - Protein urine present [Unknown]
  - Blood creatinine increased [Unknown]
  - Diabetic nephropathy [Unknown]
  - Renal tubular atrophy [Unknown]
  - Albumin urine present [Unknown]
  - Blood triglycerides increased [Unknown]
  - Blood cholesterol increased [Unknown]
  - Hypertensive nephropathy [Unknown]
